FAERS Safety Report 20351660 (Version 2)
Quarter: 2022Q1

REPORT INFORMATION
  Report Type: Spontaneous
  Country: GB (occurrence: GB)
  Receive Date: 20220119
  Receipt Date: 20220202
  Transmission Date: 20220423
  Serious: Yes (Other)
  Sender: FDA-Public Use
  Company Number: None

PATIENT

DRUGS (2)
  1. ACETAMINOPHEN [Suspect]
     Active Substance: ACETAMINOPHEN
     Indication: Product used for unknown indication
     Route: 065
  2. ASTRAZENECA COVID-19 VACCINE [Suspect]
     Active Substance: AZD-1222
     Indication: Product used for unknown indication
     Route: 065
     Dates: start: 20210205

REACTIONS (7)
  - Tremor [Unknown]
  - Pyrexia [Recovered/Resolved]
  - Photophobia [Unknown]
  - Pain of skin [Unknown]
  - Pain [Unknown]
  - Migraine [Unknown]
  - Myalgia [Unknown]

NARRATIVE: CASE EVENT DATE: 20210205
